FAERS Safety Report 16247142 (Version 4)
Quarter: 2019Q2

REPORT INFORMATION
  Report Type: Spontaneous
  Country: FI (occurrence: FI)
  Receive Date: 20190427
  Receipt Date: 20190529
  Transmission Date: 20190711
  Serious: Yes (Other)
  Sender: FDA-Public Use
  Company Number: FI-009507513-1904FIN008704

PATIENT
  Sex: Female

DRUGS (6)
  1. BUVENTOL [Concomitant]
     Active Substance: ALBUTEROL SULFATE
  2. SYMBICORT [Concomitant]
     Active Substance: BUDESONIDE\FORMOTEROL FUMARATE DIHYDRATE
  3. AERIUS (DESLORATADINE) [Concomitant]
     Active Substance: DESLORATADINE
     Indication: HYPERSENSITIVITY
  4. PROPRAL [Concomitant]
  5. NEXPLANON [Suspect]
     Active Substance: ETONOGESTREL
     Dosage: 1 IMPLANT
     Route: 059
     Dates: start: 20161121, end: 20190417
  6. SINGULAIR [Concomitant]
     Active Substance: MONTELUKAST SODIUM

REACTIONS (12)
  - Pregnancy test false positive [Unknown]
  - Migraine [Unknown]
  - Complication of device insertion [Recovered/Resolved]
  - Abortion spontaneous [Unknown]
  - Vaginal haemorrhage [Unknown]
  - Ill-defined disorder [Unknown]
  - Unintended pregnancy [Recovered/Resolved]
  - Abdominal pain lower [Recovered/Resolved]
  - Device dislocation [Recovered/Resolved]
  - Pregnancy with implant contraceptive [Recovered/Resolved]
  - Pyrexia [Not Recovered/Not Resolved]
  - Complication associated with device [Recovered/Resolved]

NARRATIVE: CASE EVENT DATE: 20161121
